FAERS Safety Report 8209482-0 (Version None)
Quarter: 2012Q1

REPORT INFORMATION
  Report Type: 
  Country: None (occurrence: None)
  Receive Date: 20120314
  Receipt Date: 20120312
  Transmission Date: 20120608
  Serious: Yes (Other)
  Sender: FDA-Public Use
  Company Number: US-PFIZER INC-2012025298

PATIENT
  Sex: Male
  Weight: 49.887 kg

DRUGS (10)
  1. COMBIVIR [Concomitant]
     Indication: HIV INFECTION
     Dosage: UNK
  2. LYRICA [Concomitant]
     Indication: FIBROMYALGIA
     Dosage: UNK
  3. VIREAD [Concomitant]
     Indication: HIV INFECTION
     Dosage: UNK
  4. PANTOPRAZOLE [Concomitant]
     Dosage: UNK
  5. OXYGEN [Concomitant]
     Indication: CHRONIC OBSTRUCTIVE PULMONARY DISEASE
     Dosage: UNK
  6. CHANTIX [Suspect]
     Dosage: UNK
     Dates: start: 20110101
  7. XANAX [Concomitant]
     Indication: NERVOUS SYSTEM DISORDER
     Dosage: UNK
  8. CHANTIX [Suspect]
     Indication: SMOKING CESSATION THERAPY
     Dosage: 0.5 MG, 2X/DAY
     Route: 048
     Dates: start: 20110701, end: 20110101
  9. KALETRA [Concomitant]
     Indication: HIV INFECTION
     Dosage: UNK
  10. KEPPRA [Concomitant]
     Indication: CONVULSION
     Dosage: UNK

REACTIONS (2)
  - DYSPNOEA [None]
  - DRUG INEFFECTIVE [None]
